FAERS Safety Report 17744050 (Version 2)
Quarter: 2023Q1

REPORT INFORMATION
  Report Type: Spontaneous
  Country: DE (occurrence: DE)
  Receive Date: 20200505
  Receipt Date: 20230210
  Transmission Date: 20230418
  Serious: Yes (Hospitalization)
  Sender: FDA-Public Use
  Company Number: DE-NOVARTISPH-NVSC2020DE116398

PATIENT
  Age: 24 Year
  Sex: Male

DRUGS (1)
  1. PEGFILGRASTIM [Suspect]
     Active Substance: PEGFILGRASTIM
     Indication: Leukopenia
     Dosage: 2 INJECTIONS (MOST RECENT DOSE GIVEN 5 DAYS PRIOR TO EMERGENCY ROOM VISIT)
     Route: 065

REACTIONS (1)
  - Splenic rupture [Unknown]
